FAERS Safety Report 23201886 (Version 1)
Quarter: 2023Q4

REPORT INFORMATION
  Report Type: Spontaneous
  Country: CA (occurrence: CA)
  Receive Date: 20231120
  Receipt Date: 20231120
  Transmission Date: 20240109
  Serious: Yes (Death)
  Sender: FDA-Public Use
  Company Number: CA-BAYER-2023A159471

PATIENT
  Sex: Male

DRUGS (4)
  1. EYLEA [Suspect]
     Active Substance: AFLIBERCEPT
     Indication: Age-related macular degeneration
     Dosage: TOTAL AFLIBERCEPT INJECTIONS: 13 OU (RECEIVED Q6-8 WEEKS), 40 MG/ML, SOLUTION FOR INJECTION
     Dates: start: 20220707, end: 20220707
  2. EYLEA [Suspect]
     Active Substance: AFLIBERCEPT
     Dosage: TOTAL AFLIBERCEPT INJECTIONS: 13 OU (RECEIVED Q6-8 WEEKS), 40 MG/ML, SOLUTION FOR INJECTION
     Dates: start: 20230907, end: 20230907
  3. AMLODIPINE [Concomitant]
     Active Substance: AMLODIPINE BESYLATE
     Indication: Product used for unknown indication
  4. LIPITOR [Concomitant]
     Active Substance: ATORVASTATIN CALCIUM
     Indication: Product used for unknown indication

REACTIONS (1)
  - Death [Fatal]
